FAERS Safety Report 5361990-6 (Version None)
Quarter: 2007Q2

REPORT INFORMATION
  Report Type: 
  Country: None (occurrence: None)
  Receive Date: 20070619
  Receipt Date: 20070605
  Transmission Date: 20071010
  Serious: Yes (Hospitalization, Other)
  Sender: FDA-Public Use
  Company Number: FR-ELI_LILLY_AND_COMPANY-FR200702003026

PATIENT
  Age: 65 Year
  Sex: Female

DRUGS (2)
  1. FORTEO [Suspect]
     Indication: OSTEOPOROSIS
     Dosage: 20 UG, DAILY (1/D)
     Route: 058
     Dates: start: 20061130
  2. MORPHINE [Concomitant]

REACTIONS (5)
  - DEVICE OCCLUSION [None]
  - GENERAL PHYSICAL HEALTH DETERIORATION [None]
  - LIP AND/OR ORAL CAVITY CANCER RECURRENT [None]
  - LUNG INFECTION [None]
  - WEIGHT DECREASED [None]
